FAERS Safety Report 7599621-7 (Version None)
Quarter: 2011Q3

REPORT INFORMATION
  Report Type: 
  Country: None (occurrence: None)
  Receive Date: 20110711
  Receipt Date: 20110702
  Transmission Date: 20111222
  Serious: Yes (Hospitalization)
  Sender: FDA-Public Use
  Company Number: US-SHIRE-ALL1-2011-02100

PATIENT
  Sex: Male

DRUGS (4)
  1. UNSPECIFIED BLOOD THINNER [Concomitant]
     Indication: ANTICOAGULANT THERAPY
     Dosage: UNK, 1X/DAY:QD
     Route: 048
  2. UNSPECIFIED HIGH CHOLESTEROL MEDICATION [Concomitant]
     Indication: BLOOD CHOLESTEROL INCREASED
     Dosage: UNK MG, 1X/DAY:QD
     Route: 048
  3. UNSPECIFIED DIABETIC MEDICATION [Concomitant]
     Indication: DIABETES MELLITUS
     Dosage: UNK MG, 1X/DAY:QD
     Route: 048
  4. LIALDA [Suspect]
     Indication: COLITIS ULCERATIVE
     Dosage: 7.2 G, 1.2 G TABLET (6 A DAY)
     Route: 048

REACTIONS (2)
  - CEREBROVASCULAR ACCIDENT [None]
  - OVERDOSE [None]
